FAERS Safety Report 7224304-2 (Version None)
Quarter: 2011Q1

REPORT INFORMATION
  Report Type: 
  Country: None (occurrence: None)
  Receive Date: 20110104
  Receipt Date: 20101222
  Transmission Date: 20110831
  Serious: Yes (Hospitalization)
  Sender: FDA-Public Use
  Company Number: 024323

PATIENT

DRUGS (1)
  1. CIMZIA [Suspect]
     Indication: OFF LABEL USE
     Dosage: (SUBCUTANEOUS)
     Route: 058
     Dates: start: 20101018

REACTIONS (4)
  - OFF LABEL USE [None]
  - CROHN'S DISEASE [None]
  - HENOCH-SCHONLEIN PURPURA [None]
  - RASH [None]
